FAERS Safety Report 16668032 (Version 2)
Quarter: 2019Q3

REPORT INFORMATION
  Report Type: Spontaneous
  Country: US (occurrence: US)
  Receive Date: 20190805
  Receipt Date: 20190806
  Transmission Date: 20191004
  Serious: No
  Sender: FDA-Public Use
  Company Number: US-009507513-1908USA000530

PATIENT
  Sex: Female

DRUGS (1)
  1. PROVENTIL [Suspect]
     Active Substance: ALBUTEROL
     Indication: ASTHMA
     Dosage: 1 DOSAGE FORM (PRSCRIBED DOSAGE: ONE TO TWO PUFFS EVERY FOUR TO SIX HOURS AS NEEDED, QUANTITY: 1)
     Dates: start: 20190731

REACTIONS (4)
  - Poor quality device used [Recovered/Resolved]
  - Asthma [Recovering/Resolving]
  - Product quality issue [Recovered/Resolved]
  - Product dose omission [Unknown]

NARRATIVE: CASE EVENT DATE: 2019
